FAERS Safety Report 8032109-8 (Version None)
Quarter: 2012Q1

REPORT INFORMATION
  Report Type: 
  Country: None (occurrence: None)
  Receive Date: 20120109
  Receipt Date: 20120102
  Transmission Date: 20120608
  Serious: Yes (Other)
  Sender: FDA-Public Use
  Company Number: FR-RB-035713-11

PATIENT
  Age: 41 Year
  Sex: Male
  Weight: 104 kg

DRUGS (3)
  1. SUBUTEX [Suspect]
     Indication: ELECTROLYTE SUBSTITUTION THERAPY
     Dosage: 16 MG DAILY
     Route: 060
     Dates: start: 20000101
  2. SUBUTEX [Suspect]
     Dosage: 6 MG
     Route: 065
  3. SUBUTEX [Suspect]
     Dosage: 3 MG
     Route: 065

REACTIONS (1)
  - HALLUCINATION [None]
